FAERS Safety Report 18933533 (Version 1)
Quarter: 2021Q1

REPORT INFORMATION
  Report Type: Spontaneous
  Country: US (occurrence: US)
  Receive Date: 20210224
  Receipt Date: 20210224
  Transmission Date: 20210420
  Serious: No
  Sender: FDA-Public Use
  Company Number: US-TEVA-2021-US-1884714

PATIENT
  Sex: Female

DRUGS (1)
  1. BUPRENORPHINE TEVA [Suspect]
     Active Substance: BUPRENORPHINE
     Dosage: DOSE: 15 MICROGRAM IN 1 HOUR
     Route: 062
     Dates: start: 202004

REACTIONS (9)
  - Application site swelling [Unknown]
  - Application site vesicles [Unknown]
  - Application site irritation [Unknown]
  - Application site exfoliation [Unknown]
  - Application site rash [Unknown]
  - Application site pruritus [Unknown]
  - Application site urticaria [Unknown]
  - Application site discomfort [Unknown]
  - Application site erythema [Unknown]

NARRATIVE: CASE EVENT DATE: 202004
